FAERS Safety Report 8611914-0 (Version None)
Quarter: 2012Q3

REPORT INFORMATION
  Report Type: 
  Country: None (occurrence: None)
  Receive Date: 20120822
  Receipt Date: 20120814
  Transmission Date: 20120928
  Serious: Yes (Hospitalization)
  Sender: FDA-Public Use
  Company Number: US-BAYER-2012-083928

PATIENT
  Age: 33 Year
  Sex: Female
  Weight: 102.4 kg

DRUGS (2)
  1. TYLENOL [Concomitant]
     Dosage: 500 MG, PRN
     Dates: start: 20031001
  2. YASMIN [Suspect]

REACTIONS (3)
  - PORTAL VEIN THROMBOSIS [None]
  - CHOLECYSTITIS CHRONIC [None]
  - MESENTERIC VEIN THROMBOSIS [None]
